FAERS Safety Report 7270838-4 (Version None)
Quarter: 2011Q1

REPORT INFORMATION
  Report Type: 
  Country: None (occurrence: None)
  Receive Date: 20110125
  Receipt Date: 20110125
  Transmission Date: 20110831
  Serious: Yes (Life-Threatening)
  Sender: FDA-Public Use
  Company Number: None

PATIENT
  Age: 61 Year
  Sex: Male
  Weight: 73 kg

DRUGS (1)
  1. LOPERAMIDE [Suspect]
     Indication: DIARRHOEA
     Dosage: 2MG Q4-8H PO
     Route: 048

REACTIONS (5)
  - PO2 INCREASED [None]
  - BLOOD PH DECREASED [None]
  - RESPIRATORY ARREST [None]
  - CYANOSIS [None]
  - PCO2 INCREASED [None]
